FAERS Safety Report 17827847 (Version 1)
Quarter: 2020Q2

REPORT INFORMATION
  Report Type: Spontaneous
  Country: US (occurrence: US)
  Receive Date: 20200526
  Receipt Date: 20200526
  Transmission Date: 20200714
  Serious: Yes (Hospitalization)
  Sender: FDA-Public Use
  Company Number: None

PATIENT
  Age: 70 Year
  Sex: Female

DRUGS (5)
  1. LOSARTAN. [Concomitant]
     Active Substance: LOSARTAN
  2. TOBRA/DEXAMETHASONE [Concomitant]
  3. TOBRAMYCIN. [Concomitant]
     Active Substance: TOBRAMYCIN
  4. TAMIFLU [Concomitant]
     Active Substance: OSELTAMIVIR PHOSPHATE
  5. CAPECTABINE [Suspect]
     Active Substance: CAPECITABINE
     Indication: PRODUCT USED FOR UNKNOWN INDICATION
     Route: 048
     Dates: start: 20191017

REACTIONS (3)
  - Confusional state [None]
  - Head injury [None]
  - Fall [None]

NARRATIVE: CASE EVENT DATE: 20200522
